FAERS Safety Report 6826802-X (Version None)
Quarter: 2010Q3

REPORT INFORMATION
  Report Type: 
  Country: None (occurrence: None)
  Receive Date: 20100709
  Receipt Date: 20100629
  Transmission Date: 20110219
  Serious: Yes (Other)
  Sender: FDA-Public Use
  Company Number: CA-TEVA-239747USA

PATIENT
  Age: 17 Year
  Sex: Female

DRUGS (1)
  1. SEASONALE [Suspect]
     Indication: CONTRACEPTION
     Route: 048
     Dates: start: 20100501

REACTIONS (1)
  - CONVULSION [None]
